FAERS Safety Report 23159614 (Version 1)
Quarter: 2023Q4

REPORT INFORMATION
  Report Type: Spontaneous
  Country: US (occurrence: US)
  Receive Date: 20231108
  Receipt Date: 20231108
  Transmission Date: 20240109
  Serious: Yes (Other)
  Sender: FDA-Public Use
  Company Number: US-GLAND PHARMA LIMITED-2023US004040

PATIENT

DRUGS (1)
  1. ADENOSINE [Suspect]
     Active Substance: ADENOSINE
     Indication: General anaesthesia
     Dosage: UNK
     Route: 042

REACTIONS (3)
  - Cardiac perfusion defect [Unknown]
  - Hypotension [Unknown]
  - Product use in unapproved indication [Unknown]
